FAERS Safety Report 9818261 (Version 1)
Quarter: 2014Q1

REPORT INFORMATION
  Report Type: Spontaneous
  Country: US (occurrence: US)
  Receive Date: 20140115
  Receipt Date: 20140115
  Transmission Date: 20141002
  Serious: Yes (Other)
  Sender: FDA-Public Use
  Company Number: US-BAYER-2014-003117

PATIENT
  Age: 74 Year
  Sex: Female

DRUGS (1)
  1. ALEVE CAPLET [Suspect]
     Dosage: DF

REACTIONS (2)
  - Pharyngeal oedema [Unknown]
  - Swollen tongue [Unknown]
